FAERS Safety Report 9159260 (Version 1)
Quarter: 2013Q1

REPORT INFORMATION
  Report Type: Report from Study
  Country: CA (occurrence: CA)
  Receive Date: 20130313
  Receipt Date: 20130313
  Transmission Date: 20140127
  Serious: Yes (Hospitalization)
  Sender: FDA-Public Use
  Company Number: CA-JNJFOC-20130300658

PATIENT
  Sex: Male
  Weight: 75 kg

DRUGS (5)
  1. REMICADE [Suspect]
     Indication: CROHN^S DISEASE
     Route: 042
     Dates: start: 20110405
  2. NOVORAPID INSULIN [Concomitant]
     Route: 065
  3. NPH INSULIN [Concomitant]
     Route: 065
  4. IMURAN [Concomitant]
     Route: 065
  5. CITALOPRAM [Concomitant]
     Route: 065

REACTIONS (4)
  - Diabetic ketoacidosis [Recovered/Resolved]
  - Norovirus test positive [Recovered/Resolved]
  - Crohn^s disease [Recovered/Resolved]
  - Pregnancy of partner [Not Recovered/Not Resolved]
